FAERS Safety Report 15622293 (Version 1)
Quarter: 2018Q4

REPORT INFORMATION
  Report Type: Spontaneous
  Country: ES (occurrence: ES)
  Receive Date: 20181115
  Receipt Date: 20181115
  Transmission Date: 20190205
  Serious: Yes (Hospitalization)
  Sender: FDA-Public Use
  Company Number: ES-PFIZER INC-2018465578

PATIENT
  Age: 78 Year
  Sex: Female

DRUGS (2)
  1. ENOXAPARIN SODIUM. [Concomitant]
     Active Substance: ENOXAPARIN SODIUM
     Dosage: 20 MG, 1X/DAY
     Route: 058
     Dates: start: 20180813, end: 20180818
  2. TIGECYCLINE. [Suspect]
     Active Substance: TIGECYCLINE
     Indication: ARTERIOVENOUS FISTULA SITE INFECTION
     Dosage: 100 MG, 2X/DAY
     Route: 042
     Dates: start: 20180809, end: 20180819

REACTIONS (4)
  - Hepatitis [Recovered/Resolved]
  - Thrombocytopenia [Recovered/Resolved]
  - Prothrombin time prolonged [Recovered/Resolved]
  - Blood fibrinogen decreased [Recovered/Resolved]

NARRATIVE: CASE EVENT DATE: 20180813
